FAERS Safety Report 5978156-9 (Version None)
Quarter: 2008Q4

REPORT INFORMATION
  Report Type: 
  Country: None (occurrence: None)
  Receive Date: 20081126
  Receipt Date: 20081113
  Transmission Date: 20090506
  Serious: Yes (Hospitalization)
  Sender: FDA-Public Use
  Company Number: 2008-186800-NL

PATIENT
  Age: 26 Year
  Sex: Female
  Weight: 98 kg

DRUGS (1)
  1. IMPLANON [Suspect]
     Indication: CONTRACEPTION
     Dosage: NI SUBDERMAL, UNKNOWN
     Route: 059
     Dates: start: 20080707, end: 20081112

REACTIONS (4)
  - GALLBLADDER PAIN [None]
  - HAEMORRHAGE [None]
  - NAUSEA [None]
  - VOMITING [None]
